FAERS Safety Report 10551512 (Version 1)
Quarter: 2014Q4

REPORT INFORMATION
  Report Type: Spontaneous
  Country: US (occurrence: US)
  Receive Date: 20141029
  Receipt Date: 20141029
  Transmission Date: 20150529
  Serious: No
  Sender: FDA-Public Use
  Company Number: US-PFIZER INC-2014293392

PATIENT
  Age: 78 Year
  Sex: Female

DRUGS (15)
  1. REVATIO [Suspect]
     Active Substance: SILDENAFIL CITRATE
     Indication: PULMONARY ARTERIAL HYPERTENSION
     Dosage: 20 MG, 3X/DAY
     Route: 048
  2. OXYGEN. [Concomitant]
     Active Substance: OXYGEN
     Dosage: 2 LITRES, UNK
  3. VOLTAREN [Concomitant]
     Active Substance: DICLOFENAC SODIUM
     Dosage: TWO THREE TIME WEEKLY AS NEEDED
     Route: 062
  4. KLOR CON M20 [Concomitant]
     Dosage: 10 MCG ORAL DAILY, AS NEEDED SOMETIMES TWO TIME DAILY
     Route: 048
  5. BYSTOLIC [Concomitant]
     Active Substance: NEBIVOLOL HYDROCHLORIDE
     Dosage: 5 MG, 1X/DAY
     Route: 048
  6. NEXIUM [Concomitant]
     Active Substance: ESOMEPRAZOLE MAGNESIUM
     Dosage: 40 MG, 1X/DAY
     Route: 048
  7. ALPRAZOLAM XR [Concomitant]
     Active Substance: ALPRAZOLAM
     Dosage: 0.5 MG, AS NEEDED
     Route: 048
  8. TYLENOL EXTENDED RELEASE [Concomitant]
     Dosage: 650 MG, 2X/DAY
     Route: 048
  9. SPIRIVA [Suspect]
     Active Substance: TIOTROPIUM BROMIDE MONOHYDRATE
     Dosage: 18 UG, DAILY
     Route: 055
     Dates: start: 20140609
  10. ATORVASTATIN CALCIUM. [Concomitant]
     Active Substance: ATORVASTATIN CALCIUM
     Dosage: 10 MG TABLET, 1/5 ORAL DAILY
     Route: 048
  11. TRACLEER [Concomitant]
     Active Substance: BOSENTAN\BOSENTAN MONOHYDRATE
     Dosage: 125 MG, 2X/DAY
     Route: 048
  12. ALLOPURINOL. [Concomitant]
     Active Substance: ALLOPURINOL
     Dosage: UNK, DAILY
     Route: 048
  13. VENTAVIS [Concomitant]
     Active Substance: ILOPROST
     Dosage: 20MCG/ML SOLUTION, INHALATION SIX TIMES DAILY
     Route: 055
  14. BUMETANIDE. [Concomitant]
     Active Substance: BUMETANIDE
     Dosage: 2 MG, DAILY
     Route: 048
  15. FERROUS SULFATE [Concomitant]
     Active Substance: FERROUS SULFATE\FERROUS SULFATE, DRIED
     Dosage: 325 MG, DAILY
     Route: 048

REACTIONS (13)
  - Dyspnoea exertional [Unknown]
  - Abdominal distension [Unknown]
  - Nasal congestion [Unknown]
  - Pain in extremity [Unknown]
  - Productive cough [Unknown]
  - Oedema peripheral [Unknown]
  - Sinus congestion [Unknown]
  - Arthralgia [Unknown]
  - Muscle spasms [Unknown]
  - Peripheral swelling [Unknown]
  - Rhinorrhoea [Unknown]
  - Fatigue [Unknown]
  - Constipation [Unknown]
